FAERS Safety Report 24940103 (Version 1)
Quarter: 2025Q1

REPORT INFORMATION
  Report Type: Spontaneous
  Country: US (occurrence: US)
  Receive Date: 20250207
  Receipt Date: 20250207
  Transmission Date: 20250408
  Serious: Yes (Hospitalization)
  Sender: BRISTOL-MYERS SQUIBB COMPANY
  Company Number: US-BRISTOL-MYERS SQUIBB COMPANY-2025-016694

PATIENT
  Age: 78 Year
  Sex: Female

DRUGS (1)
  1. LENALIDOMIDE [Suspect]
     Active Substance: LENALIDOMIDE
     Indication: Plasma protein metabolism disorder
     Dosage: TAKE 1 WHOLE CAPSULE BY MOUTH WITH WATER ONCE DAILY DO NOT BREAK, CHEW OR OPEN
     Route: 048

REACTIONS (1)
  - Vertigo [Not Recovered/Not Resolved]
